FAERS Safety Report 9332391 (Version 10)
Quarter: 2013Q4

REPORT INFORMATION
  Report Type: Report from Study
  Country: AR (occurrence: AR)
  Receive Date: 20130606
  Receipt Date: 20131203
  Transmission Date: 20140711
  Serious: Yes (Other)
  Sender: FDA-Public Use
  Company Number: PHHY2013AR055942

PATIENT
  Age: 44 Year
  Sex: Male

DRUGS (6)
  1. LAPENAX [Suspect]
     Indication: MENTAL DISORDER
     Dosage: UNK UKN, UNK
     Route: 048
  2. LAPENAX [Suspect]
     Dosage: 450 MG, QD
  3. LAPENAX [Suspect]
     Dosage: UNK UKN, UNK
     Route: 048
     Dates: end: 20131118
  4. VALPROIC ACID [Concomitant]
     Dosage: UNK UKN, UNK
  5. PROMETHAZINE [Concomitant]
     Dosage: UNK UKN, UNK
  6. CLONAZEPAM [Concomitant]
     Dosage: UNK UKN, UNK

REACTIONS (6)
  - Non-Hodgkin^s lymphoma [Not Recovered/Not Resolved]
  - Lymphadenopathy [Not Recovered/Not Resolved]
  - Leukopenia [Unknown]
  - Neutropenia [Unknown]
  - White blood cell count increased [Recovered/Resolved]
  - Neutrophil count increased [Recovered/Resolved]
